FAERS Safety Report 21868358 (Version 4)
Quarter: 2023Q4

REPORT INFORMATION
  Report Type: Report from Study
  Country: AT (occurrence: AT)
  Receive Date: 20230116
  Receipt Date: 20231031
  Transmission Date: 20240110
  Serious: Yes (Hospitalization, Other)
  Sender: FDA-Public Use
  Company Number: AT-CELLTRION INC.-2023AT000415

PATIENT

DRUGS (51)
  1. HERCEPTIN [Suspect]
     Active Substance: TRASTUZUMAB
     Indication: HER2 positive breast cancer
  2. TRASTUZUMAB [Suspect]
     Active Substance: TRASTUZUMAB
     Indication: HER2 positive breast cancer
     Dosage: 510 MG, EVERY 3 WEEKS (MOST RECENT DOSE PRIOR TO AE 21/OCT/2020)
     Route: 042
     Dates: start: 20190315, end: 20200103
  3. TRASTUZUMAB [Suspect]
     Active Substance: TRASTUZUMAB
     Dosage: 680 MG EVERY 3 WEEKS
     Route: 042
     Dates: start: 20190315, end: 20190315
  4. TRASTUZUMAB [Suspect]
     Active Substance: TRASTUZUMAB
     Dosage: 510 MG EVERY 3 WEEKS (MOST RECENT DOSE PRIOR TO AE 21/OCT/2020)
     Route: 042
     Dates: start: 20190403, end: 20200103
  5. PERTUZUMAB [Suspect]
     Active Substance: PERTUZUMAB
     Indication: HER2 positive breast cancer
     Dosage: 420 MG, EVERY 3 WEEKS; MOST RECENT DOSE PRIOR TO AE 03/JAN/2020
     Route: 042
     Dates: start: 20190315
  6. PERTUZUMAB [Suspect]
     Active Substance: PERTUZUMAB
     Dosage: 840 MG, EVERY 3 WEEKS
     Route: 042
     Dates: start: 20190315, end: 20190315
  7. PERTUZUMAB [Suspect]
     Active Substance: PERTUZUMAB
     Dosage: 420 MG, EVERY 3 WEEKS
     Route: 042
     Dates: start: 20190403, end: 20200103
  8. DOXORUBICIN [Suspect]
     Active Substance: DOXORUBICIN
     Indication: HER2 positive breast cancer
     Dosage: 30 MG/M2 EVERY 3 WEEKS
     Route: 042
     Dates: start: 20220627, end: 20220818
  9. TUCATINIB [Suspect]
     Active Substance: TUCATINIB
     Indication: HER2 positive breast cancer
     Dosage: 200 MG, EVERY 0.5 DAYS
     Route: 048
     Dates: start: 20210509, end: 20210528
  10. TUCATINIB [Suspect]
     Active Substance: TUCATINIB
     Dosage: 300 MG, EVERY 0.5 DAYS
     Route: 048
     Dates: start: 20201120, end: 20210108
  11. TUCATINIB [Suspect]
     Active Substance: TUCATINIB
     Dosage: 250 MG, EVERY 0.5 DAYS
     Route: 048
     Dates: start: 20210108, end: 20210428
  12. ADO-TRASTUZUMAB EMTANSINE [Suspect]
     Active Substance: ADO-TRASTUZUMAB EMTANSINE
     Indication: HER2 positive breast cancer
     Dosage: 292 MG, EVERY 3 WEEKS (MOST RECENT DOSE PRIOR TO AE 26/AUG/2020)
     Route: 042
     Dates: start: 20200129, end: 20200826
  13. SACITUZUMAB GOVITECAN [Suspect]
     Active Substance: SACITUZUMAB GOVITECAN
     Indication: HER2 positive breast cancer
     Dosage: 10 MG, D1+D8, Q21D
     Route: 042
     Dates: start: 20221207, end: 20230105
  14. CAPECITABINE [Suspect]
     Active Substance: CAPECITABINE
     Indication: HER2 positive breast cancer
     Dosage: 2000 MG, (FREQUENCY: OTHER MOST RECENT DOSE PRIOR TO THE EVENT: 19/JAN/2021 D1-14. Q21D)
     Route: 048
     Dates: start: 20210119, end: 20210522
  15. CAPECITABINE [Suspect]
     Active Substance: CAPECITABINE
     Dosage: 3500 MG (FREQUENCY: OTHER MOST RECENT DOSE PRIOR TO THE EVENT: 19/JAN/2021 D1-D14, Q21D)
     Route: 048
     Dates: start: 20201031, end: 20201120
  16. CAPECITABINE [Suspect]
     Active Substance: CAPECITABINE
     Dosage: 3000 MG (FREQUENCY: OTHER MOST RECENT DOSE PRIOR TO THE EVENT: 19/JAN/2021 D1-14. Q21D)
     Route: 048
     Dates: start: 20201121, end: 20201218
  17. FAM-TRASTUZUMAB DERUXTECAN-NXKI [Suspect]
     Active Substance: FAM-TRASTUZUMAB DERUXTECAN-NXKI
     Indication: HER2 positive breast cancer
     Dosage: 4.4 MG/KG EVERY 3 WEEKS
     Route: 042
     Dates: start: 20210721, end: 20210811
  18. FAM-TRASTUZUMAB DERUXTECAN-NXKI [Suspect]
     Active Substance: FAM-TRASTUZUMAB DERUXTECAN-NXKI
     Dosage: 3.2 MG/KG EVERY 3 WEEKS
     Route: 042
     Dates: start: 20220302, end: 20220512
  19. FAM-TRASTUZUMAB DERUXTECAN-NXKI [Suspect]
     Active Substance: FAM-TRASTUZUMAB DERUXTECAN-NXKI
     Dosage: 5.4 MG/KG EVERY 3 WEEKS
     Route: 042
     Dates: start: 20210628, end: 20210628
  20. FAM-TRASTUZUMAB DERUXTECAN-NXKI [Suspect]
     Active Substance: FAM-TRASTUZUMAB DERUXTECAN-NXKI
     Dosage: 4.4 MG/KG EVERY 3 WEEKS
     Route: 042
     Dates: start: 20220118, end: 20220209
  21. FAM-TRASTUZUMAB DERUXTECAN-NXKI [Suspect]
     Active Substance: FAM-TRASTUZUMAB DERUXTECAN-NXKI
     Dosage: 5.4 MG/KG EVERY 3 WEEKS
     Route: 042
     Dates: start: 20210901, end: 20211228
  22. ERIBULIN MESYLATE [Suspect]
     Active Substance: ERIBULIN MESYLATE
     Indication: HER2 positive breast cancer
     Dosage: 1.23 MG/M2, D1+D8. Q21D
     Route: 042
     Dates: start: 20230209, end: 20230322
  23. HYALURONIDASE-ZZXF\PERTUZUMAB\TRASTUZUMAB [Suspect]
     Active Substance: HYALURONIDASE-ZZXF\PERTUZUMAB\TRASTUZUMAB
     Indication: HER2 positive breast cancer
     Dosage: 600 MG, EVERY 3 WEEKS
     Route: 058
     Dates: start: 20220727, end: 20220818
  24. VINORELBINE [Suspect]
     Active Substance: VINORELBINE TARTRATE
     Indication: HER2 positive breast cancer
     Dosage: 58 MG EVERY 3 WEEKS
     Route: 042
     Dates: start: 20190918, end: 20200103
  25. VINORELBINE [Suspect]
     Active Substance: VINORELBINE TARTRATE
     Dosage: 58 MG, EVERY 3 WEEKS
     Route: 042
     Dates: start: 20190315, end: 20190625
  26. HYALURONIDASE (HUMAN RECOMBINANT)\TRASTUZUMAB [Suspect]
     Active Substance: HYALURONIDASE (HUMAN RECOMBINANT)\TRASTUZUMAB
     Indication: HER2 positive breast cancer
     Dosage: 600 MG, EVERY 3 WEEKS
     Route: 058
     Dates: start: 20201021, end: 20210429
  27. NADROPARIN CALCIUM [Concomitant]
     Active Substance: NADROPARIN CALCIUM
     Indication: Prophylaxis
     Dosage: ONGOING = CHECKED 0.30 ML (MILLILITER; CM3)
     Dates: start: 20190208
  28. APREPITANT [Concomitant]
     Active Substance: APREPITANT
     Dosage: 80 MG (ONGOING = CHECKED D2+D3 OF EACH CYCLE OF TDXT)
     Dates: start: 20210722, end: 20220514
  29. APREPITANT [Concomitant]
     Active Substance: APREPITANT
     Dosage: 125 MG (ONGOING = CHECKED D1 OF EACH CYCLE OF TDXT)
     Dates: start: 20210721, end: 20220512
  30. PREDNISOLONE SODIUM SUCCINATE [Concomitant]
     Active Substance: PREDNISOLONE SODIUM SUCCINATE
     Indication: Prophylaxis
     Dosage: 250 MG, D1 OF EACH CYCLE OF CAELYX
     Dates: start: 20220627, end: 20220915
  31. ZYPREXA [Concomitant]
     Active Substance: OLANZAPINE
     Indication: Nausea
     Dosage: ONGOING = CHECKED, D14
     Dates: start: 20210721
  32. AMOXICILLIN\CLAVULANATE POTASSIUM [Concomitant]
     Active Substance: AMOXICILLIN\CLAVULANATE POTASSIUM
     Dosage: 1G EVERY 0.5 DAYS (16 OCT 2019 } EXANTHEMA AREA OF CLAVICULA)
     Dates: start: 20191030, end: 20191107
  33. ESOMEPRAZOLE [Concomitant]
     Active Substance: ESOMEPRAZOLE
     Indication: Abdominal pain upper
     Dosage: 40 MILLIGRAM, QD (ONGOING = CHECKED)
     Dates: start: 20190726
  34. ESOMEPRAZOLE [Concomitant]
     Active Substance: ESOMEPRAZOLE
     Indication: Prophylaxis
     Dosage: ONGOING = CHECKED
     Dates: start: 20211215
  35. EMEND [Concomitant]
     Active Substance: APREPITANT
     Indication: Nausea
     Dosage: 2.5 MG, (ONGOING = CHECKED D1-14)
     Dates: start: 20210721
  36. EMEND [Concomitant]
     Active Substance: APREPITANT
     Dosage: 125 MG, (ONGOING = CHECKED, D1)
     Dates: start: 20210722
  37. ACETAMINOPHEN [Concomitant]
     Active Substance: ACETAMINOPHEN
     Indication: Prophylaxis
     Dosage: 1000 MG, DAY 1 OF EACH CYCLE OF SACITUZUMAB-GOV
     Dates: start: 20221207, end: 20230105
  38. DEXAMETHASONE [Concomitant]
     Active Substance: DEXAMETHASONE
     Indication: Prophylaxis
     Dosage: 12 MG, DAY 1 OF EACH CYCLE OF SACITUZUMAB-GOVIT
     Dates: start: 20221207, end: 20230105
  39. DEXAMETHASONE [Concomitant]
     Active Substance: DEXAMETHASONE
     Dosage: 40 MG, DAY 1 OF EACH CYCLE OF SACITUZUMAB-GOVIT
     Dates: start: 20230209
  40. DEXAMETHASONE [Concomitant]
     Active Substance: DEXAMETHASONE
     Dosage: 12 MILLIGRAM (ONGOING = CHECKED D1,2 AND 3 OF EACH CYCLE OF TDXT)
     Dates: start: 20210628
  41. DEXAMETHASONE [Concomitant]
     Active Substance: DEXAMETHASONE
     Dosage: 4 MILLIGRAM (ONGOING = CHECKED D1,2 AND 3 OF EACH CYCLE OF TDXT)D1,2 AND 3 OF EACH CYCLE OF TDXT)
     Dates: start: 20221208
  42. LOPERAMIDE HYDROCHLORIDE [Concomitant]
     Active Substance: LOPERAMIDE HYDROCHLORIDE
     Indication: Prophylaxis
     Dosage: 2 MG, ONGOING = CHECKED
     Dates: start: 20190315
  43. POLYETHYLENE GLYCOL 3350\POTASSIUM CHLORIDE\SODIUM BICARBONATE\SODIUM [Concomitant]
     Active Substance: POLYETHYLENE GLYCOL 3350\POTASSIUM CHLORIDE\SODIUM BICARBONATE\SODIUM CHLORIDE
     Indication: Prophylaxis
     Dosage: ONGOING = CHECKED SACHET
     Dates: start: 20210722
  44. SUCRALFATE [Concomitant]
     Active Substance: SUCRALFATE
     Indication: Prophylaxis
     Dosage: 1 G, ONGOING = CHECKED
     Dates: start: 20190403
  45. DIPHENHYDRAMINE [Concomitant]
     Active Substance: DIPHENHYDRAMINE
     Indication: Prophylaxis
     Dosage: 50 MG, DAY 1 OF EACH CYCLE OF SACITUZUMAB-GOV
     Dates: start: 20221207, end: 20230105
  46. ONDANSETRON [Concomitant]
     Active Substance: ONDANSETRON
     Indication: Prophylaxis
     Dosage: 16 MG
     Dates: start: 20221207, end: 20230105
  47. ONDANSETRON [Concomitant]
     Active Substance: ONDANSETRON
     Dosage: 8 MG
     Dates: start: 20221208, end: 20230107
  48. ONDANSETRON [Concomitant]
     Active Substance: ONDANSETRON
     Dosage: 16 MG
     Dates: start: 20230209
  49. METOCLOPRAMIDE HYDROCHLORIDE [Concomitant]
     Active Substance: METOCLOPRAMIDE HYDROCHLORIDE
     Indication: Nausea
     Dosage: 10 MG, ONGOING = CHECKED
     Dates: start: 20210708
  50. ZOFRAN [Concomitant]
     Active Substance: ONDANSETRON HYDROCHLORIDE
     Indication: Prophylaxis
     Dosage: 8 MG, ONGOING = CHECKED
     Dates: start: 20190315
  51. ZOFRAN [Concomitant]
     Active Substance: ONDANSETRON HYDROCHLORIDE
     Dosage: 125 MG, ONGOING = CHECKED D1 AND D2 OF EACH CYCLE OF CAELYX
     Dates: start: 20221207

REACTIONS (2)
  - Pneumothorax [Recovered/Resolved with Sequelae]
  - Pneumonia [Not Recovered/Not Resolved]

NARRATIVE: CASE EVENT DATE: 20221115
